FAERS Safety Report 17445307 (Version 2)
Quarter: 2020Q2

REPORT INFORMATION
  Report Type: Spontaneous
  Country: US (occurrence: US)
  Receive Date: 20200221
  Receipt Date: 20200420
  Transmission Date: 20200713
  Serious: No
  Sender: FDA-Public Use
  Company Number: US-GLAXOSMITHKLINE-US2020AMR025660

PATIENT
  Sex: Female
  Weight: 70.76 kg

DRUGS (1)
  1. IMITREX [Suspect]
     Active Substance: SUMATRIPTAN SUCCINATE
     Indication: MIGRAINE
     Dosage: UNK
     Route: 065
     Dates: start: 202001

REACTIONS (6)
  - Nausea [Unknown]
  - Vision blurred [Unknown]
  - Influenza like illness [Unknown]
  - Medication overuse headache [Unknown]
  - Condition aggravated [Unknown]
  - Migraine [Unknown]
